FAERS Safety Report 21353663 (Version 1)
Quarter: 2022Q3

REPORT INFORMATION
  Report Type: Spontaneous
  Country: JP (occurrence: JP)
  Receive Date: 20220920
  Receipt Date: 20220920
  Transmission Date: 20221027
  Serious: Yes (Other)
  Sender: FDA-Public Use
  Company Number: JP-MSD-2209JPN001820J

PATIENT
  Age: 8 Decade
  Sex: Male

DRUGS (1)
  1. KEYTRUDA [Suspect]
     Active Substance: PEMBROLIZUMAB
     Indication: Malignant melanoma
     Dosage: UNK UNK, Q3W
     Route: 041
     Dates: start: 20170622

REACTIONS (3)
  - Malignant neoplasm progression [Unknown]
  - Haemothorax [Unknown]
  - Anaemia [Unknown]

NARRATIVE: CASE EVENT DATE: 20170101
